FAERS Safety Report 9526375 (Version 1)
Quarter: 2013Q3

REPORT INFORMATION
  Report Type: Spontaneous
  Country: US (occurrence: US)
  Receive Date: 20130916
  Receipt Date: 20130916
  Transmission Date: 20140515
  Serious: Yes (Hospitalization)
  Sender: FDA-Public Use
  Company Number: US-PERRIGO-13US009271

PATIENT
  Age: 54 Year
  Sex: Female

DRUGS (11)
  1. IBUPROFEN 200 MG 604 [Suspect]
     Indication: PRODUCT USED FOR UNKNOWN INDICATION
     Dosage: UNK
     Route: 065
  2. ENALAPRIL [Suspect]
     Indication: PRODUCT USED FOR UNKNOWN INDICATION
     Dosage: UNK
     Route: 065
  3. METFORMIN [Suspect]
     Indication: PRODUCT USED FOR UNKNOWN INDICATION
     Dosage: UNK
     Route: 065
  4. GLIMEPIRIDE [Concomitant]
     Indication: PRODUCT USED FOR UNKNOWN INDICATION
     Dosage: UNK
     Route: 065
  5. NIMESULIDE [Concomitant]
     Indication: PRODUCT USED FOR UNKNOWN INDICATION
     Dosage: UNK
     Route: 065
  6. IMIPRAMINE [Concomitant]
     Indication: PRODUCT USED FOR UNKNOWN INDICATION
     Dosage: UNK
     Route: 065
  7. ASPIRIN [Suspect]
     Indication: CHILLS
     Dosage: UNK
     Route: 065
  8. ASPIRIN [Suspect]
     Indication: SKIN WARM
  9. ASPIRIN [Suspect]
     Indication: MALAISE
  10. ASPIRIN [Suspect]
     Indication: PAIN
  11. NORMAL SALINE [Concomitant]

REACTIONS (21)
  - Dyspnoea [None]
  - Unresponsive to stimuli [None]
  - Confusional state [None]
  - Renal failure [Recovered/Resolved]
  - Abdominal pain [Unknown]
  - Vomiting [None]
  - Incoherent [Recovered/Resolved]
  - Hypophagia [None]
  - Agitation [Recovered/Resolved]
  - Acidosis [None]
  - Malaise [Recovered/Resolved]
  - Chills [Recovered/Resolved]
  - Skin warm [Recovered/Resolved]
  - Leukocytosis [Recovered/Resolved]
  - Pancreatic enzymes increased [Recovered/Resolved]
  - Hyperphosphataemia [Recovered/Resolved]
  - Tachypnoea [Recovered/Resolved]
  - Somnolence [Recovered/Resolved]
  - Pancreatic disorder [Recovered/Resolved]
  - Body temperature decreased [Recovered/Resolved]
  - Gastric occult blood positive [Recovered/Resolved]
